FAERS Safety Report 5754335-0 (Version None)
Quarter: 2008Q2

REPORT INFORMATION
  Report Type: 
  Country: None (occurrence: None)
  Receive Date: 20080530
  Receipt Date: 20080522
  Transmission Date: 20081010
  Serious: Yes (Hospitalization, Congenital Anomaly, Other)
  Sender: FDA-Public Use
  Company Number: GB-ABBOTT-08P-167-0441228-00

PATIENT
  Sex: Male

DRUGS (1)
  1. VALPROIC ACID [Suspect]
     Indication: DRUG EXPOSURE DURING PREGNANCY
     Route: 064

REACTIONS (40)
  - ATRIAL SEPTAL DEFECT [None]
  - BLOOD GLUCOSE DECREASED [None]
  - CARDIAC MURMUR [None]
  - CEREBRAL ATROPHY [None]
  - CONGENITAL NOSE MALFORMATION [None]
  - CONGENITAL NYSTAGMUS [None]
  - CONVULSION [None]
  - DEVELOPMENTAL DELAY [None]
  - DRUG EXPOSURE DURING PREGNANCY [None]
  - DYSMORPHISM [None]
  - DYSPNOEA [None]
  - ENDOTRACHEAL INTUBATION COMPLICATION [None]
  - FEEDING DISORDER OF INFANCY OR EARLY CHILDHOOD [None]
  - FEELING JITTERY [None]
  - FOETAL ANTICONVULSANT SYNDROME [None]
  - FOOT DEFORMITY [None]
  - FUNDOSCOPY ABNORMAL [None]
  - HIGH ARCHED PALATE [None]
  - HYPOTONIA [None]
  - ILL-DEFINED DISORDER [None]
  - INGUINAL HERNIA [None]
  - LIMB DEFORMITY [None]
  - LOW SET EARS [None]
  - LOWER RESPIRATORY TRACT INFECTION [None]
  - MULTIPLE CONGENITAL ABNORMALITIES [None]
  - MYOPIA [None]
  - PNEUMONIA [None]
  - RESPIRATORY DISORDER [None]
  - RESPIRATORY DISTRESS [None]
  - RETRACTED NIPPLE [None]
  - RETROGNATHIA [None]
  - SKULL MALFORMATION [None]
  - SPEECH DISORDER DEVELOPMENTAL [None]
  - SYSTEMIC-PULMONARY ARTERY SHUNT [None]
  - TRACHEOMALACIA [None]
  - UMBILICAL CORD AROUND NECK [None]
  - VIRAL INFECTION [None]
  - VISUAL ACUITY REDUCED [None]
  - VISUAL DISTURBANCE [None]
  - WHEEZING [None]
